FAERS Safety Report 13951996 (Version 1)
Quarter: 2017Q3

REPORT INFORMATION
  Report Type: Spontaneous
  Country: NO (occurrence: NO)
  Receive Date: 20170910
  Receipt Date: 20170910
  Transmission Date: 20171128
  Serious: Yes (Other)
  Sender: FDA-Public Use
  Company Number: NO-BAUSCH-BL-2017-026647

PATIENT
  Age: 33 Year
  Sex: Female

DRUGS (1)
  1. DICLOFENAC [Suspect]
     Active Substance: DICLOFENAC
     Indication: PRODUCT USED FOR UNKNOWN INDICATION
     Route: 065

REACTIONS (8)
  - Anaphylactic reaction [Recovered/Resolved]
  - Throat tightness [Recovered/Resolved]
  - Hypotension [Recovered/Resolved]
  - Tonic convulsion [Recovered/Resolved]
  - Loss of consciousness [Recovered/Resolved]
  - Abdominal pain upper [Recovered/Resolved]
  - Oral pruritus [Recovered/Resolved]
  - Pruritus [Recovered/Resolved]
